FAERS Safety Report 24605803 (Version 2)
Quarter: 2024Q4

REPORT INFORMATION
  Report Type: Report from Study
  Country: US (occurrence: US)
  Receive Date: 20241111
  Receipt Date: 20241219
  Transmission Date: 20250114
  Serious: Yes (Death, Other)
  Sender: BOEHRINGER INGELHEIM
  Company Number: US-Komodo Health-a23aa0000049s26AAA

PATIENT
  Age: 80 Year
  Sex: Male

DRUGS (1)
  1. OFEV [Suspect]
     Active Substance: NINTEDANIB
     Indication: Idiopathic pulmonary fibrosis

REACTIONS (3)
  - Chronic respiratory failure [Fatal]
  - Interstitial lung disease [Fatal]
  - Idiopathic pulmonary fibrosis [Fatal]
